FAERS Safety Report 5010949-7 (Version None)
Quarter: 2006Q2

REPORT INFORMATION
  Report Type: 
  Country: None (occurrence: None)
  Receive Date: 20060525
  Receipt Date: 20060327
  Transmission Date: 20061013
  Serious: No
  Sender: FDA-Public Use
  Company Number: JP-BRISTOL-MYERS SQUIBB COMPANY-13330287

PATIENT
  Age: 60 Year
  Sex: Female

DRUGS (3)
  1. TAXOL [Suspect]
     Indication: BREAST CANCER
     Route: 041
     Dates: start: 20051014, end: 20051111
  2. ENDOXAN [Suspect]
     Indication: BREAST CANCER
     Route: 041
     Dates: start: 20051125, end: 20060203
  3. DOXORUBICINE [Suspect]
     Indication: BREAST CANCER
     Route: 041
     Dates: start: 20051125, end: 20060203

REACTIONS (2)
  - HYPOAESTHESIA [None]
  - NAIL DISORDER [None]
